FAERS Safety Report 20756874 (Version 2)
Quarter: 2022Q3

REPORT INFORMATION
  Report Type: Spontaneous
  Country: US (occurrence: US)
  Receive Date: 20220427
  Receipt Date: 20220713
  Transmission Date: 20221026
  Serious: No
  Sender: FDA-Public Use
  Company Number: US-PFIZER INC-202101381164

PATIENT
  Age: 51 Year
  Sex: Female

DRUGS (1)
  1. XELJANZ XR [Suspect]
     Active Substance: TOFACITINIB CITRATE
     Indication: Psoriatic arthropathy
     Dosage: 11 MG, 1X/DAY
     Route: 048
     Dates: start: 202108

REACTIONS (4)
  - Nasopharyngitis [Unknown]
  - Nasal congestion [Unknown]
  - Cough [Not Recovered/Not Resolved]
  - Breakthrough pain [Unknown]

NARRATIVE: CASE EVENT DATE: 20210101
